FAERS Safety Report 20681869 (Version 1)
Quarter: 2022Q2

REPORT INFORMATION
  Report Type: Spontaneous
  Country: ES (occurrence: ES)
  Receive Date: 20220407
  Receipt Date: 20220407
  Transmission Date: 20220721
  Serious: Yes (Hospitalization, Other)
  Sender: FDA-Public Use
  Company Number: None

PATIENT
  Age: 76 Year
  Sex: Male

DRUGS (9)
  1. LENALIDOMIDE [Suspect]
     Active Substance: LENALIDOMIDE
     Indication: Plasma cell myeloma
     Route: 048
     Dates: start: 20180108, end: 20220308
  2. DUTASTERIDE\TAMSULOSIN [Concomitant]
     Active Substance: DUTASTERIDE\TAMSULOSIN
     Indication: Benign prostatic hyperplasia
     Route: 048
     Dates: start: 20200909
  3. OMEPRAZOLE [Concomitant]
     Active Substance: OMEPRAZOLE
     Indication: Product used for unknown indication
     Route: 048
     Dates: start: 20191203
  4. ACICLOVIR AUROVITAS [Concomitant]
     Indication: Product used for unknown indication
     Route: 065
     Dates: start: 20181112
  5. ASPIRIN [Concomitant]
     Active Substance: ASPIRIN
     Indication: Product used for unknown indication
     Route: 048
     Dates: start: 20190103
  6. ACETAMINOPHEN [Concomitant]
     Active Substance: ACETAMINOPHEN
     Indication: Product used for unknown indication
     Route: 048
     Dates: start: 20201222
  7. EFENSOL [Concomitant]
     Indication: Product used for unknown indication
     Route: 048
     Dates: start: 20191107
  8. EFENSOL [Concomitant]
     Indication: Product used for unknown indication
     Route: 048
     Dates: start: 20191107
  9. FILGRASTIM [Concomitant]
     Active Substance: FILGRASTIM
     Indication: Product used for unknown indication
     Route: 048
     Dates: start: 20200914, end: 20220308

REACTIONS (1)
  - Pleomorphic malignant fibrous histiocytoma [Unknown]

NARRATIVE: CASE EVENT DATE: 20210817
